FAERS Safety Report 9516736 (Version 2)
Quarter: 2013Q3

REPORT INFORMATION
  Report Type: Spontaneous
  Country: US (occurrence: US)
  Receive Date: 20130911
  Receipt Date: 20130911
  Transmission Date: 20140515
  Serious: Yes (Death, Other)
  Sender: FDA-Public Use
  Company Number: US-TAKEDA-TPA2013A05316

PATIENT
  Sex: 0

DRUGS (3)
  1. ACTOS [Suspect]
     Indication: TYPE 2 DIABETES MELLITUS
     Dosage: 30 MG, 45 MG UNK
     Dates: start: 2005, end: 200711
  2. METFORMIN [Concomitant]
     Dosage: 500-1000 MG
     Dates: start: 1990, end: 2007
  3. LANTUS [Concomitant]
     Dosage: 35 - 100 UNITS
     Dates: start: 2005, end: 2007

REACTIONS (1)
  - Bladder cancer [Fatal]
